FAERS Safety Report 16664429 (Version 1)
Quarter: 2019Q3

REPORT INFORMATION
  Report Type: Spontaneous
  Country: GB (occurrence: GB)
  Receive Date: 20190802
  Receipt Date: 20190802
  Transmission Date: 20191004
  Serious: Yes (Other)
  Sender: FDA-Public Use
  Company Number: GB-ALLERGAN-1931475US

PATIENT
  Sex: Female

DRUGS (2)
  1. JUVEDERM [Suspect]
     Active Substance: HYALURONIC ACID
     Indication: SKIN WRINKLING
     Dosage: UNK, SINGLE
  2. BOTULINUM TOXIN TYPE A UNK [Suspect]
     Active Substance: BOTULINUM TOXIN TYPE A
     Indication: SKIN WRINKLING
     Dosage: UNK, SINGLE

REACTIONS (5)
  - Urticaria [Recovered/Resolved]
  - Face oedema [Recovering/Resolving]
  - Fatigue [Unknown]
  - Type IV hypersensitivity reaction [Unknown]
  - Oedema peripheral [Unknown]
